FAERS Safety Report 11232600 (Version 1)
Quarter: 2015Q3

REPORT INFORMATION
  Report Type: Spontaneous
  Country: CA (occurrence: CA)
  Receive Date: 20150701
  Receipt Date: 20150701
  Transmission Date: 20151125
  Serious: Yes (Other)
  Sender: FDA-Public Use
  Company Number: CA-BAUSCH-BL-2015-016499

PATIENT
  Age: 70 Year
  Sex: Female

DRUGS (2)
  1. TIMOPTIC-XE [Suspect]
     Active Substance: TIMOLOL MALEATE
     Indication: GLAUCOMA
     Dosage: IN HER LEFT EYE
     Route: 047
     Dates: start: 201409
  2. MICARDIS [Concomitant]
     Active Substance: TELMISARTAN
     Indication: PRODUCT USED FOR UNKNOWN INDICATION

REACTIONS (9)
  - Ocular hyperaemia [Unknown]
  - Nausea [Unknown]
  - Rash macular [Unknown]
  - Eye pruritus [Unknown]
  - Hypertensive crisis [Unknown]
  - Skin discolouration [Unknown]
  - Vomiting [Unknown]
  - Muscular weakness [Unknown]
  - Dizziness [Unknown]

NARRATIVE: CASE EVENT DATE: 20150520
